FAERS Safety Report 5250925-2 (Version None)
Quarter: 2007Q1

REPORT INFORMATION
  Report Type: 
  Country: None (occurrence: None)
  Receive Date: 20070228
  Receipt Date: 20060727
  Transmission Date: 20070707
  Serious: No
  Sender: FDA-Public Use
  Company Number: US-GLAXOSMITHKLINE-A0613792A

PATIENT
  Age: 66 Year
  Sex: Male

DRUGS (8)
  1. LAMICTAL [Suspect]
     Dosage: 200MG THREE TIMES PER DAY
     Route: 048
  2. TEGRETOL [Concomitant]
  3. PHENOBARBITAL TAB [Concomitant]
  4. CRESTOR [Concomitant]
  5. PEPCID [Concomitant]
  6. PLAVIX [Concomitant]
  7. ASPIRIN [Concomitant]
  8. ATIVAN [Concomitant]

REACTIONS (1)
  - ALOPECIA [None]
